FAERS Safety Report 5853680-8 (Version None)
Quarter: 2008Q3

REPORT INFORMATION
  Report Type: 
  Country: None (occurrence: None)
  Receive Date: 20080822
  Receipt Date: 20080815
  Transmission Date: 20090109
  Serious: Yes (Other)
  Sender: FDA-Public Use
  Company Number: CA-ASTRAZENECA-2008UW16533

PATIENT
  Age: 73 Year
  Sex: Female

DRUGS (7)
  1. ARIMIDEX [Suspect]
     Route: 048
     Dates: start: 20070505
  2. AVALIDE [Concomitant]
  3. LECTOPAM TAB [Concomitant]
  4. CALCIUM WITH VITAMIN D [Concomitant]
  5. TENORMIN [Concomitant]
  6. SYNTHROID [Concomitant]
  7. FOSAMAX [Concomitant]

REACTIONS (1)
  - RENAL FAILURE [None]
